FAERS Safety Report 6873517-8 (Version None)
Quarter: 2010Q3

REPORT INFORMATION
  Report Type: 
  Country: None (occurrence: None)
  Receive Date: 20100723
  Receipt Date: 20090307
  Transmission Date: 20110219
  Serious: No
  Sender: FDA-Public Use
  Company Number: US-PFIZER INC-2009157371

PATIENT
  Sex: Female
  Weight: 58.967 kg

DRUGS (3)
  1. CHANTIX [Suspect]
     Indication: SMOKING CESSATION THERAPY
     Dosage: 1 MG, 2X/DAY
     Route: 048
     Dates: start: 20081210, end: 20090303
  2. IBUPROFEN [Suspect]
  3. ZYRTEC [Concomitant]
     Indication: DERMATITIS ALLERGIC
     Dosage: UNK

REACTIONS (6)
  - DRUG WITHDRAWAL SYNDROME [None]
  - FORMICATION [None]
  - HEADACHE [None]
  - IMPATIENCE [None]
  - IRRITABILITY [None]
  - SCREAMING [None]
